FAERS Safety Report 5175141-4 (Version None)
Quarter: 2006Q4

REPORT INFORMATION
  Report Type: 
  Country: None (occurrence: None)
  Receive Date: 20061206
  Receipt Date: 20061124
  Transmission Date: 20070319
  Serious: Yes (Other)
  Sender: FDA-Public Use
  Company Number: 233181

PATIENT
  Sex: Female

DRUGS (1)
  1. XOLAIR [Suspect]
     Indication: DRUG USE FOR UNKNOWN INDICATION
     Dosage: Q2W, SUBCUTANEOUS
     Route: 058
     Dates: start: 20061101

REACTIONS (1)
  - PNEUMONIA [None]
